FAERS Safety Report 8998605 (Version 1)
Quarter: 2013Q1

REPORT INFORMATION
  Report Type: Spontaneous
  Country: US (occurrence: US)
  Receive Date: 20130103
  Receipt Date: 20130103
  Transmission Date: 20140127
  Serious: No
  Sender: FDA-Public Use
  Company Number: US-ASTRAZENECA-2012SE90103

PATIENT
  Age: 79 Year
  Sex: Female

DRUGS (2)
  1. NEXIUM [Suspect]
     Route: 048
  2. ACTOS [Suspect]
     Dosage: GENERIC
     Route: 048

REACTIONS (3)
  - Blood glucose decreased [Unknown]
  - Blood glucose increased [Unknown]
  - Ear discomfort [Unknown]
